FAERS Safety Report 18912726 (Version 1)
Quarter: 2021Q1

REPORT INFORMATION
  Report Type: Spontaneous
  Country: US (occurrence: US)
  Receive Date: 20210219
  Receipt Date: 20210219
  Transmission Date: 20210420
  Serious: Yes (Hospitalization, Other)
  Sender: FDA-Public Use
  Company Number: US-SCIEGEN-2021SCILIT00140

PATIENT
  Age: 89 Year
  Sex: Male

DRUGS (6)
  1. ACICLOVIR [Suspect]
     Active Substance: ACYCLOVIR
     Indication: HERPES ZOSTER
     Route: 048
  2. ACETAMINOPHEN W/OXYCODONE [Interacting]
     Active Substance: ACETAMINOPHEN\OXYCODONE HYDROCHLORIDE
     Indication: PAIN MANAGEMENT
     Dosage: 10 MG/325 MG
     Route: 048
  3. GABAPENTIN CAPSULES [Suspect]
     Active Substance: GABAPENTIN
     Indication: HERPES ZOSTER
     Route: 048
  4. ACETAMINOPHEN W/OXYCODONE [Interacting]
     Active Substance: ACETAMINOPHEN\OXYCODONE HYDROCHLORIDE
     Indication: CONSTIPATION
  5. SODIUM PHOSPHATE [Interacting]
     Active Substance: SODIUM PHOSPHATE
     Indication: CONSTIPATION
     Route: 065
  6. LACTULOSE. [Interacting]
     Active Substance: LACTULOSE
     Indication: CONSTIPATION
     Route: 065

REACTIONS (3)
  - Hip fracture [Unknown]
  - Incorrect dose administered [Unknown]
  - Fall [Unknown]
